FAERS Safety Report 9236589 (Version 1)
Quarter: 2013Q2

REPORT INFORMATION
  Report Type: Spontaneous
  Country: AT (occurrence: AT)
  Receive Date: 20130417
  Receipt Date: 20130417
  Transmission Date: 20140414
  Serious: Yes (Other)
  Sender: FDA-Public Use
  Company Number: AT-TEVA-397639ISR

PATIENT
  Age: 48 Year
  Sex: Female

DRUGS (3)
  1. AMOXICILLIN [Suspect]
     Indication: OTITIS MEDIA
     Dosage: 2 DOSAGE FORMS DAILY; 1-0-1
     Dates: start: 20130314, end: 20130318
  2. OTRIVIN NASENGEL 0.1% [Concomitant]
  3. EUTHYROX 100 MIKROGRAMM [Concomitant]

REACTIONS (4)
  - Agitation [Unknown]
  - Anxiety [Unknown]
  - Sleep disorder [Unknown]
  - Palpitations [Unknown]
